FAERS Safety Report 7423841-5 (Version None)
Quarter: 2011Q2

REPORT INFORMATION
  Report Type: 
  Country: None (occurrence: None)
  Receive Date: 20110419
  Receipt Date: 20110409
  Transmission Date: 20111010
  Serious: Yes (Other)
  Sender: FDA-Public Use
  Company Number: PHHY2011US30556

PATIENT

DRUGS (1)
  1. GILENYA [Suspect]
     Dosage: UNK
     Route: 048

REACTIONS (1)
  - ATRIOVENTRICULAR BLOCK [None]
